FAERS Safety Report 7177380-X (Version None)
Quarter: 2010Q4

REPORT INFORMATION
  Report Type: 
  Country: None (occurrence: None)
  Receive Date: 20101220
  Receipt Date: 20101213
  Transmission Date: 20110411
  Serious: Yes (Death)
  Sender: FDA-Public Use
  Company Number: PHHY2010US79375

PATIENT
  Sex: Male

DRUGS (3)
  1. GLEEVEC [Suspect]
     Indication: CHRONIC MYELOID LEUKAEMIA
     Dosage: 400 MG, QD
     Route: 048
  2. TEMAZEPAM [Concomitant]
     Dosage: 7.5 MG, UNK
  3. DARVOCET-N 100 [Concomitant]

REACTIONS (9)
  - CARDIO-RESPIRATORY ARREST [None]
  - CONSTIPATION [None]
  - DRUG INEFFECTIVE [None]
  - HAEMATOCRIT DECREASED [None]
  - HYPOACUSIS [None]
  - MEAN CELL VOLUME INCREASED [None]
  - MYOCARDIAL INFARCTION [None]
  - NAUSEA [None]
  - WEIGHT DECREASED [None]
